FAERS Safety Report 6159191-7 (Version None)
Quarter: 2009Q2

REPORT INFORMATION
  Report Type: 
  Country: None (occurrence: None)
  Receive Date: 20090415
  Receipt Date: 20090406
  Transmission Date: 20091009
  Serious: Yes (Other)
  Sender: FDA-Public Use
  Company Number: 2008AL010788

PATIENT
  Sex: Female

DRUGS (1)
  1. DIGOXIN [Suspect]
     Dosage: 0.25MG, PO
     Route: 048

REACTIONS (4)
  - ECONOMIC PROBLEM [None]
  - INJURY [None]
  - OVERDOSE [None]
  - PRODUCT QUALITY ISSUE [None]
